FAERS Safety Report 11278858 (Version 1)
Quarter: 2015Q3

REPORT INFORMATION
  Report Type: Report from Study
  Country: US (occurrence: US)
  Receive Date: 20150717
  Receipt Date: 20150717
  Transmission Date: 20151125
  Serious: Yes (Other)
  Sender: FDA-Public Use
  Company Number: US-ROCHE-1606661

PATIENT

DRUGS (4)
  1. NAPROXEN. [Suspect]
     Active Substance: NAPROXEN
     Indication: OSTEOARTHRITIS
  2. NAPROXEN. [Suspect]
     Active Substance: NAPROXEN
     Indication: OSTEOARTHRITIS
     Route: 048
  3. TANEZUMAB [Suspect]
     Active Substance: TANEZUMAB
     Indication: OSTEOARTHRITIS
     Route: 042
  4. TANEZUMAB [Suspect]
     Active Substance: TANEZUMAB
     Indication: OSTEOARTHRITIS
     Route: 042

REACTIONS (5)
  - Osteonecrosis [Unknown]
  - Cholelithiasis [Unknown]
  - Arthralgia [Unknown]
  - Chest pain [Unknown]
  - Osteoarthritis [Unknown]
